FAERS Safety Report 7335674-9 (Version None)
Quarter: 2011Q1

REPORT INFORMATION
  Report Type: 
  Country: None (occurrence: None)
  Receive Date: 20110307
  Receipt Date: 20110228
  Transmission Date: 20110831
  Serious: Yes (Hospitalization)
  Sender: FDA-Public Use
  Company Number: A0897799A

PATIENT
  Sex: Female

DRUGS (2)
  1. AVANDIA [Suspect]
     Route: 048
     Dates: start: 20050301, end: 20060501
  2. AVANDAMET [Suspect]
     Route: 048

REACTIONS (2)
  - CHEST PAIN [None]
  - CARDIAC DISORDER [None]
